FAERS Safety Report 20754175 (Version 1)
Quarter: 2022Q2

REPORT INFORMATION
  Report Type: Spontaneous
  Country: US (occurrence: None)
  Receive Date: 20220426
  Receipt Date: 20220426
  Transmission Date: 20220721
  Serious: No
  Sender: FDA-Public Use
  Company Number: US-ROCHE-3023839

PATIENT
  Sex: Female

DRUGS (2)
  1. ESBRIET [Suspect]
     Active Substance: PIRFENIDONE
     Indication: Idiopathic pulmonary fibrosis
     Route: 048
     Dates: start: 20210909
  2. ENBREL [Concomitant]
     Active Substance: ETANERCEPT
     Indication: Arthritis
     Route: 065

REACTIONS (2)
  - Dyspnoea [Unknown]
  - Lung disorder [Unknown]
